FAERS Safety Report 22215513 (Version 1)
Quarter: 2023Q2

REPORT INFORMATION
  Report Type: Spontaneous
  Country: US (occurrence: US)
  Receive Date: 20230416
  Receipt Date: 20230416
  Transmission Date: 20230721
  Serious: No
  Sender: FDA-Public Use
  Company Number: US-JNJFOC-20190704928

PATIENT
  Sex: Male

DRUGS (2)
  1. VISINE A [Suspect]
     Active Substance: NAPHAZOLINE HYDROCHLORIDE\PHENIRAMINE MALEATE
     Indication: Accidental exposure to product
     Dosage: UNDETERMINED AMOUNT FEW TIMES A WEEK
     Route: 047
  2. VISINE A [Suspect]
     Active Substance: NAPHAZOLINE HYDROCHLORIDE\PHENIRAMINE MALEATE
     Indication: Multiple allergies
     Dosage: UNDETERMINED AMOUNT.
     Route: 048

REACTIONS (1)
  - Accidental exposure to product [Unknown]
